FAERS Safety Report 10465928 (Version 1)
Quarter: 2014Q3

REPORT INFORMATION
  Report Type: Spontaneous
  Country: CA (occurrence: CA)
  Receive Date: 20140922
  Receipt Date: 20140922
  Transmission Date: 20150326
  Serious: Yes (Other)
  Sender: FDA-Public Use
  Company Number: CA-ROCHE-1462827

PATIENT
  Sex: Male

DRUGS (5)
  1. VICTRELIS [Suspect]
     Active Substance: BOCEPREVIR
     Indication: PRODUCT USED FOR UNKNOWN INDICATION
     Route: 065
  2. PEGASYS [Suspect]
     Active Substance: PEGINTERFERON ALFA-2A
     Indication: PRODUCT USED FOR UNKNOWN INDICATION
     Route: 065
  3. PEGASYS [Suspect]
     Active Substance: PEGINTERFERON ALFA-2A
     Route: 065
  4. RIBAVIRIN. [Suspect]
     Active Substance: RIBAVIRIN
     Indication: PRODUCT USED FOR UNKNOWN INDICATION
     Route: 065
  5. APO-NADOL [Concomitant]
     Active Substance: NADOLOL

REACTIONS (5)
  - Infection [Unknown]
  - Acne [Unknown]
  - Blood test abnormal [Unknown]
  - Rhinalgia [Unknown]
  - Stomatitis [Unknown]
